FAERS Safety Report 16342268 (Version 1)
Quarter: 2019Q2

REPORT INFORMATION
  Report Type: Spontaneous
  Country: US (occurrence: US)
  Receive Date: 20190521
  Receipt Date: 20190521
  Transmission Date: 20190711
  Serious: Yes (Other)
  Sender: FDA-Public Use
  Company Number: None

PATIENT
  Age: 40 Year
  Sex: Female
  Weight: 56.25 kg

DRUGS (1)
  1. BUPRENORPHINE. [Suspect]
     Active Substance: BUPRENORPHINE
     Indication: MIGRAINE
     Dosage: ?          OTHER FREQUENCY:WEEKLY;?
     Route: 058
     Dates: start: 20140505, end: 20190403

REACTIONS (5)
  - Abscess drainage [None]
  - Application site rash [None]
  - Dermatitis contact [None]
  - Rash pruritic [None]
  - Scratch [None]

NARRATIVE: CASE EVENT DATE: 20190402
